FAERS Safety Report 9331422 (Version 1)
Quarter: 2013Q2

REPORT INFORMATION
  Report Type: Spontaneous
  Country: GR (occurrence: GR)
  Receive Date: 20130605
  Receipt Date: 20130605
  Transmission Date: 20140414
  Serious: Yes (Disabling, Other)
  Sender: FDA-Public Use
  Company Number: GR-ACTAVIS-2013-09641

PATIENT
  Age: 54 Year
  Sex: Male

DRUGS (4)
  1. DOCETAXEL (UNKNOWN) [Suspect]
     Indication: ADENOCARCINOMA GASTRIC
     Dosage: 75 MG/M2, WEEKLY TREATMENT REGIMEN, FOR A TOTAL OF 6 CYCLES
     Route: 065
  2. XELODA [Suspect]
     Indication: ADENOCARCINOMA GASTRIC
     Dosage: 500 MG, 6 PILLS, IN A WEEKLY TREATMENT REGIMEN
     Route: 065
  3. DEXAMETHASONE [Concomitant]
     Indication: BREAST CANCER METASTATIC
     Dosage: UNK
     Route: 065
  4. CARBOPLATIN [Concomitant]
     Indication: ADENOCARCINOMA GASTRIC
     Dosage: 450 MG, WEEKLY TREATMENT REGIMEN
     Route: 065

REACTIONS (2)
  - Dacryostenosis acquired [Unknown]
  - Lacrimation increased [Unknown]
